FAERS Safety Report 6920354-1 (Version None)
Quarter: 2010Q3

REPORT INFORMATION
  Report Type: 
  Country: None (occurrence: None)
  Receive Date: 20100803
  Receipt Date: 20091130
  Transmission Date: 20110219
  Serious: Yes (Other)
  Sender: FDA-Public Use
  Company Number: 2009SP039041

PATIENT
  Age: 69 Year
  Sex: Female

DRUGS (1)
  1. INTRON A [Suspect]
     Indication: PRODUCT USED FOR UNKNOWN INDICATION
     Dosage: 3.3 MIU ; TID ;

REACTIONS (2)
  - MEDICATION ERROR [None]
  - RETINAL DETACHMENT [None]
